FAERS Safety Report 9394269 (Version 1)
Quarter: 2013Q3

REPORT INFORMATION
  Report Type: Spontaneous
  Country: MA (occurrence: MA)
  Receive Date: 20130711
  Receipt Date: 20130711
  Transmission Date: 20140515
  Serious: Yes (Hospitalization, Other)
  Sender: FDA-Public Use
  Company Number: MA-ROCHE-1247293

PATIENT
  Age: 75 Year
  Sex: Male

DRUGS (3)
  1. PEGASYS [Suspect]
     Indication: HEPATITIS C
     Route: 058
     Dates: start: 201303, end: 201305
  2. PEGASYS [Suspect]
     Route: 058
  3. COPEGUS [Suspect]
     Indication: HEPATITIS C
     Dosage: 4 TABLETS PER DAY
     Route: 048
     Dates: start: 201303, end: 201305

REACTIONS (4)
  - Neutropenia [Unknown]
  - Leukopenia [Unknown]
  - Pruritus [Not Recovered/Not Resolved]
  - Toxic skin eruption [Not Recovered/Not Resolved]
